FAERS Safety Report 8991365 (Version 1)
Quarter: 2012Q4

REPORT INFORMATION
  Report Type: 
  Country: US (occurrence: US)
  Receive Date: 20121230
  Receipt Date: 20121230
  Transmission Date: 20130627
  Serious: No
  Sender: FDA-Public Use
  Company Number: US-009507513-1212USA010099

PATIENT
  Sex: Female

DRUGS (4)
  1. VICTRELIS [Suspect]
     Indication: HEPATITIS C
     Dosage: UNK
     Route: 048
     Dates: start: 2012
  2. PEGASYS [Suspect]
  3. RIBAPAK [Suspect]
  4. PROCRIT [Concomitant]

REACTIONS (1)
  - Tooth extraction [Unknown]
